FAERS Safety Report 20104865 (Version 1)
Quarter: 2021Q4

REPORT INFORMATION
  Report Type: Spontaneous
  Country: US (occurrence: US)
  Receive Date: 20211124
  Receipt Date: 20211124
  Transmission Date: 20220304
  Serious: Yes (Death, Hospitalization)
  Sender: FDA-Public Use
  Company Number: US-STRIDES ARCOLAB LIMITED-2021SP030093

PATIENT
  Age: 75 Year
  Sex: Male

DRUGS (3)
  1. PREDNISOLONE [Suspect]
     Active Substance: PREDNISOLONE
     Indication: Myelodysplastic syndrome
     Dosage: 20 MILLIGRAM, PER DAY
     Route: 048
  2. FILGRASTIM [Concomitant]
     Active Substance: FILGRASTIM
     Indication: Myelodysplastic syndrome
     Dosage: 300 MICROGRAM, THRICE  A WEEK (ON MONDAY, WEDNESDAY AND FRIDAY)
     Route: 058
  3. PROCRIT [Concomitant]
     Active Substance: ERYTHROPOIETIN
     Indication: Myelodysplastic syndrome
     Dosage: 30000 UNITS, ONCE A WEEK
     Route: 058

REACTIONS (1)
  - COVID-19 [Fatal]
